FAERS Safety Report 6467471-0 (Version None)
Quarter: 2009Q4

REPORT INFORMATION
  Report Type: 
  Country: None (occurrence: None)
  Receive Date: 20091202
  Receipt Date: 20091126
  Transmission Date: 20100525
  Serious: Yes (Other)
  Sender: FDA-Public Use
  Company Number: BR-BRISTOL-MYERS SQUIBB COMPANY-14874952

PATIENT
  Age: 60 Year
  Sex: Female

DRUGS (1)
  1. SPRYCEL [Suspect]
     Indication: CHRONIC MYELOID LEUKAEMIA
     Dosage: TABLETS.DOSE REDUCED TO 100MG TO 70MG+50MG.THERAPY INTERRUPTED.
     Dates: start: 20090101

REACTIONS (5)
  - DERMATITIS [None]
  - DIARRHOEA [None]
  - HYPERTENSIVE CRISIS [None]
  - MELAENA [None]
  - PANCYTOPENIA [None]
